FAERS Safety Report 6733290-0 (Version None)
Quarter: 2010Q2

REPORT INFORMATION
  Report Type: 
  Country: None (occurrence: None)
  Receive Date: 20100518
  Receipt Date: 20100504
  Transmission Date: 20101027
  Serious: Yes (Hospitalization, Other)
  Sender: FDA-Public Use
  Company Number: 002520

PATIENT
  Age: 12 Year
  Sex: Male

DRUGS (5)
  1. LACOSAMIDE [Suspect]
     Indication: CONVULSION
     Dosage: 100 MG BID
     Dates: start: 20090101
  2. KEPPRA [Suspect]
     Indication: CONVULSION
     Dosage: ORAL, 750 MG BID, 500 MG BID
     Dates: start: 20090101
  3. KEPPRA [Suspect]
     Indication: CONVULSION
     Dosage: ORAL, 750 MG BID, 500 MG BID
     Dates: start: 20100101
  4. DILANTIN [Suspect]
     Dosage: 100 MG BID
     Dates: start: 20090101
  5. DEPAKOTE [Concomitant]

REACTIONS (8)
  - BLOOD CREATININE INCREASED [None]
  - CONDITION AGGRAVATED [None]
  - CONVULSION [None]
  - DRUG RASH WITH EOSINOPHILIA AND SYSTEMIC SYMPTOMS [None]
  - DYSPNOEA [None]
  - NO THERAPEUTIC RESPONSE [None]
  - OLIGURIA [None]
  - VOMITING [None]
